FAERS Safety Report 9403010 (Version 1)
Quarter: 2013Q3

REPORT INFORMATION
  Report Type: Spontaneous
  Country: US (occurrence: None)
  Receive Date: 20130715
  Receipt Date: 20130715
  Transmission Date: 20140515
  Serious: Yes (Other)
  Sender: FDA-Public Use
  Company Number: None

PATIENT
  Age: 66 Year
  Sex: Female
  Weight: 74.84 kg

DRUGS (11)
  1. JANUVIA [Suspect]
     Indication: DIABETES MELLITUS
     Route: 048
     Dates: start: 20130219, end: 20130318
  2. MICARDIS [Concomitant]
  3. FOLIC ACID [Concomitant]
  4. SYNTHROID [Concomitant]
  5. GELNIQUE GEL [Concomitant]
  6. MYRBITREQ [Concomitant]
  7. ASPIRIN [Concomitant]
  8. VIT D [Concomitant]
  9. BIOTIN [Concomitant]
  10. COQ10 [Concomitant]
  11. ULTIMATE OMEGA [Concomitant]

REACTIONS (9)
  - Headache [None]
  - Fatigue [None]
  - Pyrexia [None]
  - Chills [None]
  - Paraesthesia [None]
  - Malaise [None]
  - Pain [None]
  - Arthralgia [None]
  - Rash [None]
